FAERS Safety Report 22223126 (Version 2)
Quarter: 2023Q2

REPORT INFORMATION
  Report Type: Spontaneous
  Country: JP (occurrence: JP)
  Receive Date: 20230418
  Receipt Date: 20230421
  Transmission Date: 20230722
  Serious: Yes (Other)
  Sender: FDA-Public Use
  Company Number: JP-MLMSERVICE-20230406-4209501-1

PATIENT
  Age: 85 Year
  Sex: Female

DRUGS (3)
  1. SOLU-MEDROL [Suspect]
     Active Substance: METHYLPREDNISOLONE SODIUM SUCCINATE
     Indication: Sympathetic ophthalmia
     Dosage: 1000 MG, 1X/DAY
     Dates: start: 2020, end: 2020
  2. PREDONINE [Suspect]
     Active Substance: PREDNISOLONE
     Indication: Sympathetic ophthalmia
     Dosage: 40 MG, 1X/DAY
     Route: 048
     Dates: start: 2020, end: 2020
  3. PREDONINE [Suspect]
     Active Substance: PREDNISOLONE
     Dosage: GRADUALLY TAPERED
     Route: 048
     Dates: start: 2020

REACTIONS (2)
  - Steroid diabetes [Unknown]
  - Off label use [Unknown]

NARRATIVE: CASE EVENT DATE: 20200101
